FAERS Safety Report 16864036 (Version 1)
Quarter: 2019Q3

REPORT INFORMATION
  Report Type: Spontaneous
  Country: US (occurrence: US)
  Receive Date: 20190927
  Receipt Date: 20190927
  Transmission Date: 20191005
  Serious: Yes (Other)
  Sender: FDA-Public Use
  Company Number: US-ALLERGAN-1939047US

PATIENT
  Sex: Female

DRUGS (2)
  1. SYNTHROID [Concomitant]
     Active Substance: LEVOTHYROXINE SODIUM
  2. ARMOUR THYROID [Suspect]
     Active Substance: THYROID, PORCINE
     Indication: HYPOTHYROIDISM

REACTIONS (7)
  - Dry skin [Unknown]
  - Constipation [Unknown]
  - Heart rate irregular [Unknown]
  - Surgery [Unknown]
  - Fatigue [Unknown]
  - Mania [Unknown]
  - Onychoclasis [Unknown]
